FAERS Safety Report 13451446 (Version 3)
Quarter: 2017Q4

REPORT INFORMATION
  Report Type: Spontaneous
  Country: US (occurrence: US)
  Receive Date: 20170418
  Receipt Date: 20171101
  Transmission Date: 20180320
  Serious: No
  Sender: FDA-Public Use
  Company Number: US-BRISTOL-MYERS SQUIBB COMPANY-BMS-2017-033067

PATIENT
  Age: 17 Year
  Sex: Female

DRUGS (1)
  1. ABILIFY [Suspect]
     Active Substance: ARIPIPRAZOLE
     Indication: AUTISM SPECTRUM DISORDER
     Dosage: 30 MG, UNK
     Route: 048

REACTIONS (3)
  - Drug level increased [Unknown]
  - Prescribed overdose [Unknown]
  - Product use in unapproved indication [Unknown]
